FAERS Safety Report 7885294-2 (Version None)
Quarter: 2011Q4

REPORT INFORMATION
  Report Type: 
  Country: None (occurrence: None)
  Receive Date: 20111102
  Receipt Date: 20111026
  Transmission Date: 20120403
  Serious: Yes (Hospitalization)
  Sender: FDA-Public Use
  Company Number: US-SANOFI-AVENTIS-2011SA070756

PATIENT
  Age: 57 Year
  Sex: Male

DRUGS (16)
  1. LOVENOX [Concomitant]
  2. LORTAB [Concomitant]
  3. SENNA [Concomitant]
  4. RANITIDINE [Concomitant]
  5. PLAVIX [Suspect]
  6. MEMANTINE [Concomitant]
  7. AMLODIPINE [Concomitant]
  8. DOCUSATE [Concomitant]
  9. ASPIRIN [Concomitant]
  10. WARFARIN SODIUM [Concomitant]
  11. RITALIN [Concomitant]
  12. AZITHROMYCIN [Concomitant]
  13. ALLOPURINOL [Concomitant]
  14. REGULAR INSULIN [Concomitant]
  15. METOPROLOL TARTRATE [Concomitant]
  16. ROSUVASTATIN [Concomitant]

REACTIONS (1)
  - SURGERY [None]
